FAERS Safety Report 12283043 (Version 1)
Quarter: 2016Q2

REPORT INFORMATION
  Report Type: Spontaneous
  Country: US (occurrence: US)
  Receive Date: 20160419
  Receipt Date: 20160419
  Transmission Date: 20160815
  Serious: No
  Sender: FDA-Public Use
  Company Number: ADR-2014-02371

PATIENT
  Age: 56 Year
  Sex: Male

DRUGS (5)
  1. COMPOUNDED BACLOFEN [Suspect]
     Active Substance: BACLOFEN
     Dosage: 176.6MCG/DAY
     Route: 037
  2. LIORESAL [Suspect]
     Active Substance: BACLOFEN
     Dosage: 186.1MCG/DAY
     Route: 037
     Dates: start: 20141104
  3. COMPOUNDED BACLOFEN [Suspect]
     Active Substance: BACLOFEN
     Dosage: 194.18MCG/DAY
     Route: 037
  4. BACLOFEN. [Suspect]
     Active Substance: BACLOFEN
     Route: 037
     Dates: start: 201412
  5. BACLOFEN. [Suspect]
     Active Substance: BACLOFEN
     Route: 048

REACTIONS (6)
  - Hypotonia [Unknown]
  - Muscle spasticity [Unknown]
  - Therapeutic response decreased [Unknown]
  - Medical device site pain [Unknown]
  - Overdose [Unknown]
  - Chills [Unknown]
